FAERS Safety Report 17763746 (Version 1)
Quarter: 2020Q2

REPORT INFORMATION
  Report Type: Spontaneous
  Country: FR (occurrence: FR)
  Receive Date: 20200510
  Receipt Date: 20200510
  Transmission Date: 20200714
  Serious: Yes (Life-Threatening, Hospitalization)
  Sender: FDA-Public Use
  Company Number: FR-CADILA HEALTHCARE LIMITED-FR-ZYDUS-023234

PATIENT

DRUGS (2)
  1. ATENOLOL. [Suspect]
     Active Substance: ATENOLOL
     Indication: ATRIAL FIBRILLATION
     Dosage: 250 MILLIGRAM,IN TOTAL,(INTERVAL :1 TOTAL)
     Route: 048
     Dates: start: 20180518, end: 20180518
  2. PREVISCAN [Concomitant]
     Dosage: ()
     Route: 048

REACTIONS (4)
  - Fall [Recovered/Resolved]
  - Bradycardia [Recovered/Resolved]
  - Hypotension [Recovered/Resolved]
  - Loss of consciousness [Recovered/Resolved]

NARRATIVE: CASE EVENT DATE: 20180519
